FAERS Safety Report 5503321-4 (Version None)
Quarter: 2007Q4

REPORT INFORMATION
  Report Type: 
  Country: None (occurrence: None)
  Receive Date: 20071031
  Receipt Date: 20071031
  Transmission Date: 20080405
  Serious: Yes (Congenital Anomaly)
  Sender: FDA-Public Use
  Company Number: US-BOEHRINGER INGELHEIM PHARMACEUTICALS, INC.-2003-BP-07261BP

PATIENT
  Sex: Female

DRUGS (7)
  1. VIRAMUNE [Suspect]
     Indication: HIV INFECTION
     Route: 015
  2. AZT [Suspect]
     Indication: HIV INFECTION
     Route: 015
  3. DDI [Suspect]
     Indication: HIV INFECTION
     Route: 015
  4. ABACAVIR [Suspect]
     Indication: HIV INFECTION
     Route: 015
  5. 3TC [Suspect]
     Indication: HIV INFECTION
     Route: 015
  6. NELFINAVIR [Suspect]
     Indication: HIV INFECTION
     Route: 015
  7. SAQUINAVIR [Suspect]
     Indication: HIV INFECTION
     Route: 015

REACTIONS (2)
  - JOINT DISLOCATION [None]
  - PATENT DUCTUS ARTERIOSUS [None]
